FAERS Safety Report 11306658 (Version 2)
Quarter: 2015Q3

REPORT INFORMATION
  Report Type: Spontaneous
  Country: US (occurrence: US)
  Receive Date: 20150723
  Receipt Date: 20150729
  Transmission Date: 20151125
  Serious: No
  Sender: FDA-Public Use
  Company Number: ALCN2015US004114

PATIENT
  Age: 84 Year
  Sex: Female

DRUGS (2)
  1. BION TEARS [Suspect]
     Active Substance: DEXTRAN 70\HYPROMELLOSE 2910 (4000 MPA.S)
     Indication: PRODUCT USED FOR UNKNOWN INDICATION
     Dosage: 1 GTT, BID
     Route: 047
  2. GENTEAL NIGHT-TIME PM [Suspect]
     Active Substance: MINERAL OIL\PETROLATUM
     Indication: PRODUCT USED FOR UNKNOWN INDICATION
     Dosage: 1 DF, UNK
     Route: 047
     Dates: end: 20150625

REACTIONS (1)
  - Drug ineffective [Not Recovered/Not Resolved]
